FAERS Safety Report 8168609 (Version 6)
Quarter: 2013Q4

REPORT INFORMATION
  Report Type: Spontaneous
  Country: US (occurrence: US)
  Receive Date: 20111005
  Receipt Date: 20131202
  Transmission Date: 20140711
  Serious: Yes (Hospitalization, Other)
  Sender: FDA-Public Use
  Company Number: US-BIOGENIDEC-2011BI037270

PATIENT
  Age: 48 Year
  Sex: Male

DRUGS (2)
  1. TYSABRI [Suspect]
     Indication: MULTIPLE SCLEROSIS
     Route: 042
     Dates: start: 20090921, end: 20110712
  2. OXYCODONE [Concomitant]

REACTIONS (9)
  - Arrhythmia [Recovered/Resolved]
  - Myocardial infarction [Unknown]
  - General physical health deterioration [Recovered/Resolved]
  - Blood glucose increased [Recovered/Resolved]
  - Multiple sclerosis relapse [Recovered/Resolved]
  - Renal failure [Recovered/Resolved]
  - Claustrophobia [Not Recovered/Not Resolved]
  - Stress [Recovered/Resolved]
  - Laceration [Recovered/Resolved]
